FAERS Safety Report 7133459-X (Version None)
Quarter: 2010Q4

REPORT INFORMATION
  Report Type: 
  Country: None (occurrence: None)
  Receive Date: 20101202
  Receipt Date: 20101123
  Transmission Date: 20110411
  Serious: Yes (Hospitalization)
  Sender: FDA-Public Use
  Company Number: NL-MEDIMMUNE-MEDI-0011843

PATIENT
  Sex: Male
  Weight: 4.9 kg

DRUGS (1)
  1. SYNAGIS [Suspect]
     Route: 051
     Dates: start: 20100924, end: 20101025

REACTIONS (1)
  - SENSE OF OPPRESSION [None]
